FAERS Safety Report 16424418 (Version 4)
Quarter: 2020Q4

REPORT INFORMATION
  Report Type: Report from Study
  Country: None (occurrence: AU)
  Receive Date: 20190613
  Receipt Date: 20201112
  Transmission Date: 20210113
  Serious: Yes (Death)
  Sender: FDA-Public Use
  Company Number: AU-ABBVIE-19S-008-2815907-00

PATIENT
  Age: 78 Year
  Sex: Male

DRUGS (2)
  1. DUODOPA [Suspect]
     Active Substance: CARBIDOPA\LEVODOPA
  2. DUODOPA [Suspect]
     Active Substance: CARBIDOPA\LEVODOPA
     Indication: PARKINSON^S DISEASE
     Dosage: 100ML GEL CASSETTE, 2.6 ML/HR, 3 MLS, 1.8 ML/HR
     Route: 050
     Dates: start: 20170224, end: 20190607

REACTIONS (7)
  - Therapeutic product effect variable [Unknown]
  - Death [Fatal]
  - Intentional product misuse [Unknown]
  - On and off phenomenon [Unknown]
  - Dyskinesia [Unknown]
  - Pain [Not Recovered/Not Resolved]
  - Bradykinesia [Unknown]

NARRATIVE: CASE EVENT DATE: 20190610
